FAERS Safety Report 5015356-9 (Version None)
Quarter: 2006Q2

REPORT INFORMATION
  Report Type: 
  Country: None (occurrence: None)
  Receive Date: 20060530
  Receipt Date: 20060530
  Transmission Date: 20061013
  Serious: Yes (Other)
  Sender: FDA-Public Use
  Company Number: None

PATIENT
  Sex: Female
  Weight: 85.7298 kg

DRUGS (1)
  1. NATURAL WHITE  5-MINUTE TOOTH WHI  LORNAMEAD [Suspect]
     Indication: TOOTH DISCOLOURATION
     Dosage: APPLY GEL SPARINGLY 5 MIN 2 X DAILY DENTAL
     Route: 004
     Dates: start: 20060308, end: 20060308

REACTIONS (17)
  - CHEILITIS [None]
  - CHEST PAIN [None]
  - DRUG TOXICITY [None]
  - DYSPHAGIA [None]
  - FACIAL PAIN [None]
  - IMPAIRED DRIVING ABILITY [None]
  - MOUTH ULCERATION [None]
  - NECK PAIN [None]
  - ORAL INTAKE REDUCED [None]
  - ORAL PAIN [None]
  - PAIN IN JAW [None]
  - PHARMACEUTICAL PRODUCT COMPLAINT [None]
  - SHOULDER PAIN [None]
  - STOMATITIS [None]
  - TOOTH ABSCESS [None]
  - TOOTH DISCOLOURATION [None]
  - TOOTH EXTRACTION [None]
